FAERS Safety Report 6025386-6 (Version None)
Quarter: 2008Q4

REPORT INFORMATION
  Report Type: 
  Country: None (occurrence: None)
  Receive Date: 20081229
  Receipt Date: 20081229
  Transmission Date: 20090506
  Serious: Yes (Life-Threatening, Hospitalization)
  Sender: FDA-Public Use
  Company Number: None

PATIENT
  Age: 44 Year
  Sex: Female
  Weight: 62.5964 kg

DRUGS (3)
  1. YAZ [Suspect]
     Indication: MENSTRUAL DISCOMFORT
     Dosage: 1 PILL DAILY PO
     Route: 048
     Dates: start: 20080911, end: 20081126
  2. YAZ [Suspect]
     Indication: PREMENSTRUAL SYNDROME
     Dosage: 1 PILL DAILY PO
     Route: 048
     Dates: start: 20080911, end: 20081126
  3. . [Concomitant]

REACTIONS (1)
  - PULMONARY EMBOLISM [None]
